FAERS Safety Report 12190000 (Version 1)
Quarter: 2016Q1

REPORT INFORMATION
  Report Type: Spontaneous
  Country: US (occurrence: None)
  Receive Date: 20160317
  Receipt Date: 20160317
  Transmission Date: 20160526
  Serious: Yes (Other)
  Sender: FDA-Public Use
  Company Number: None

PATIENT
  Age: 33 Year
  Sex: Female
  Weight: 86.18 kg

DRUGS (2)
  1. ADDERALL [Suspect]
     Active Substance: AMPHETAMINE ASPARTATE\AMPHETAMINE SULFATE\DEXTROAMPHETAMINE SACCHARATE\DEXTROAMPHETAMINE SULFATE
     Indication: ATTENTION DEFICIT/HYPERACTIVITY DISORDER
     Dosage: 3 PILLS DAILY THREE TIMES DAILY TAKEN BY MOUTH
     Route: 048
     Dates: start: 20160309, end: 20160315
  2. KLONOPIN [Concomitant]
     Active Substance: CLONAZEPAM

REACTIONS (6)
  - Irritability [None]
  - Migraine [None]
  - Fatigue [None]
  - Vertigo [None]
  - Abdominal discomfort [None]
  - Anxiety [None]

NARRATIVE: CASE EVENT DATE: 20160309
